FAERS Safety Report 17859672 (Version 3)
Quarter: 2020Q2

REPORT INFORMATION
  Report Type: Spontaneous
  Country: CZ (occurrence: CZ)
  Receive Date: 20200604
  Receipt Date: 20200609
  Transmission Date: 20200714
  Serious: Yes (Hospitalization, Other)
  Sender: FDA-Public Use
  Company Number: CZ-PFIZER INC-2020210825

PATIENT
  Age: 79 Year
  Sex: Female

DRUGS (5)
  1. SOLU-MEDROL [Suspect]
     Active Substance: METHYLPREDNISOLONE SODIUM SUCCINATE
     Dosage: 1 G  (3 DOSES)
     Dates: start: 2017, end: 201801
  2. IKERVIS [Concomitant]
     Active Substance: CYCLOSPORINE
     Indication: CONJUNCTIVAL SCAR
     Dosage: UNK
     Dates: start: 2017, end: 201801
  3. PREDNISONE. [Suspect]
     Active Substance: PREDNISONE
     Dosage: 20 MG, GRADUAL REDUCTION
     Route: 048
     Dates: start: 2017, end: 201801
  4. PREDNISONE. [Suspect]
     Active Substance: PREDNISONE
     Indication: KERATITIS
     Dosage: 80 MG
     Route: 048
     Dates: start: 2017
  5. SOLU-MEDROL [Suspect]
     Active Substance: METHYLPREDNISOLONE SODIUM SUCCINATE
     Indication: KERATITIS
     Dosage: 3 DF
     Dates: start: 2017, end: 201801

REACTIONS (4)
  - Drug intolerance [Unknown]
  - Dementia [Unknown]
  - Eye pain [Unknown]
  - Ocular discomfort [Unknown]

NARRATIVE: CASE EVENT DATE: 2017
